FAERS Safety Report 12527415 (Version 2)
Quarter: 2016Q4

REPORT INFORMATION
  Report Type: Spontaneous
  Country: US (occurrence: US)
  Receive Date: 20160705
  Receipt Date: 20161213
  Transmission Date: 20170207
  Serious: Yes (Hospitalization, Other)
  Sender: FDA-Public Use
  Company Number: US-PFIZER INC-2016311866

PATIENT
  Age: 60 Year
  Sex: Male
  Weight: 129.2 kg

DRUGS (7)
  1. LASIX [Concomitant]
     Active Substance: FUROSEMIDE
     Indication: OEDEMA
     Dosage: 40 MG, 2X/DAY
     Route: 048
  2. PEPCID [Concomitant]
     Active Substance: FAMOTIDINE
  3. SYNTHROID [Concomitant]
     Active Substance: LEVOTHYROXINE SODIUM
     Indication: HYPOTHYROIDISM
     Dosage: 200 UG, 1X/DAY
     Route: 048
     Dates: start: 20150917
  4. MORPHINE [Concomitant]
     Active Substance: MORPHINE
     Indication: CANCER PAIN
     Dosage: 30 MG TABLET TWICE A DAY
     Route: 048
     Dates: start: 20160430
  5. SUTENT [Suspect]
     Active Substance: SUNITINIB MALATE
     Indication: RENAL CELL CARCINOMA
     Dosage: 50 MG, 1 CAPSULE DAILY, 4 WEEKS ON, 2 WEEKS OFF (6 WEEKS CYCLE)
     Route: 048
     Dates: start: 201509
  6. SUTENT [Suspect]
     Active Substance: SUNITINIB MALATE
     Dosage: 50 MG, DAILY
     Route: 048
     Dates: start: 201509
  7. SYNTHROID [Concomitant]
     Active Substance: LEVOTHYROXINE SODIUM
     Dosage: 125 UG, UNK
     Dates: start: 20160513

REACTIONS (7)
  - Blood pressure increased [Unknown]
  - Myalgia [Unknown]
  - Dysgeusia [Unknown]
  - Back pain [Unknown]
  - Fatigue [Unknown]
  - Sepsis [Unknown]
  - Arthritis bacterial [Unknown]
